FAERS Safety Report 24651729 (Version 1)
Quarter: 2024Q4

REPORT INFORMATION
  Report Type: Report from Study
  Country: US (occurrence: US)
  Receive Date: 20241122
  Receipt Date: 20241122
  Transmission Date: 20250115
  Serious: Yes (Other)
  Sender: ACADIA PHARMACEUTICALS
  Company Number: US-ACADIA PHARMACEUTICALS INC.-ACA-2024-TRF-007326

PATIENT
  Sex: Female

DRUGS (2)
  1. DAYBUE [Suspect]
     Active Substance: TROFINETIDE
     Indication: Rett syndrome
     Dosage: 20ML IN THE AM, 10ML MIDDAY AND 20ML IN THE PM
  2. DAYBUE [Suspect]
     Active Substance: TROFINETIDE
     Dosage: 20ML IN THE AM, 10ML MIDDAY AND 20ML IN THE PM

REACTIONS (4)
  - Seizure [Not Recovered/Not Resolved]
  - Illness [Not Recovered/Not Resolved]
  - Faeces soft [Not Recovered/Not Resolved]
  - Inappropriate schedule of product administration [Not Recovered/Not Resolved]
